FAERS Safety Report 20247450 (Version 2)
Quarter: 2022Q4

REPORT INFORMATION
  Report Type: Spontaneous
  Country: US (occurrence: US)
  Receive Date: 20211229
  Receipt Date: 20221006
  Transmission Date: 20230113
  Serious: No
  Sender: FDA-Public Use
  Company Number: US-SA-SAC20211222001241

PATIENT
  Age: 18 Year
  Sex: Female

DRUGS (6)
  1. CERDELGA [Interacting]
     Active Substance: ELIGLUSTAT
     Indication: Gaucher^s disease
     Dosage: 84 MG, BID
     Route: 048
     Dates: start: 20211104
  2. DEXTROMETHORPHAN [Suspect]
     Active Substance: DEXTROMETHORPHAN
  3. ROBITUSSIN DM [Concomitant]
     Active Substance: DEXTROMETHORPHAN HYDROBROMIDE\GUAIFENESIN
  4. BENADRYL CR [Concomitant]
  5. ZYRTEC-D [Concomitant]
     Active Substance: CETIRIZINE HYDROCHLORIDE\PSEUDOEPHEDRINE HYDROCHLORIDE
  6. LORATADINE [Concomitant]
     Active Substance: LORATADINE

REACTIONS (5)
  - Oropharyngeal pain [Unknown]
  - Drug interaction [Unknown]
  - Nasal congestion [Unknown]
  - Lacrimation increased [Unknown]
  - Productive cough [Unknown]

NARRATIVE: CASE EVENT DATE: 20220101
